FAERS Safety Report 6382312-8 (Version None)
Quarter: 2009Q3

REPORT INFORMATION
  Report Type: 
  Country: None (occurrence: None)
  Receive Date: 20090928
  Receipt Date: 20090928
  Transmission Date: 20100115
  Serious: No
  Sender: FDA-Public Use
  Company Number: None

PATIENT
  Sex: Female

DRUGS (2)
  1. TRAMADOL HCL [Suspect]
     Indication: PAIN
     Dosage: 50MG EVERY 4-6 HRS ORAL
     Route: 048
     Dates: start: 20090901
  2. SERTRALINE HCL [Concomitant]

REACTIONS (1)
  - HEADACHE [None]
